FAERS Safety Report 9442855 (Version 2)
Quarter: 2013Q3

REPORT INFORMATION
  Report Type: Spontaneous
  Country: US (occurrence: US)
  Receive Date: 20130806
  Receipt Date: 20130922
  Transmission Date: 20140515
  Serious: Yes (Hospitalization, Other)
  Sender: FDA-Public Use
  Company Number: US-AMGEN-USASP2013054242

PATIENT
  Age: 64 Year
  Sex: Male

DRUGS (1)
  1. ENBREL [Suspect]
     Indication: PSORIASIS
     Dosage: 50 MG, QWK
     Route: 065
     Dates: start: 20100730, end: 20130615

REACTIONS (11)
  - Non-Hodgkin^s lymphoma [Not Recovered/Not Resolved]
  - Dyspnoea [Not Recovered/Not Resolved]
  - Chest discomfort [Not Recovered/Not Resolved]
  - Pleural effusion [Not Recovered/Not Resolved]
  - Hospitalisation [Recovered/Resolved]
  - Atrial fibrillation [Not Recovered/Not Resolved]
  - White blood cell count decreased [Recovered/Resolved]
  - Chest X-ray abnormal [Not Recovered/Not Resolved]
  - Blood pressure abnormal [Not Recovered/Not Resolved]
  - Immune system disorder [Not Recovered/Not Resolved]
  - Anxiety [Not Recovered/Not Resolved]
